FAERS Safety Report 25802641 (Version 1)
Quarter: 2025Q3

REPORT INFORMATION
  Report Type: Spontaneous
  Country: US (occurrence: None)
  Receive Date: 20250913
  Receipt Date: 20250913
  Transmission Date: 20251021
  Serious: Yes (Other)
  Sender: FDA-CTU
  Company Number: None

PATIENT
  Age: 85 Year
  Sex: Male

DRUGS (2)
  1. LENALIDOMIDE [Suspect]
     Active Substance: LENALIDOMIDE
     Indication: Diffuse large B-cell lymphoma
     Dosage: FREQUENCY : DAILY;?
     Route: 048
     Dates: start: 20250721, end: 20250905
  2. RITUXIMAB [Suspect]
     Active Substance: RITUXIMAB

REACTIONS (2)
  - Rash papular [None]
  - Skin exfoliation [None]

NARRATIVE: CASE EVENT DATE: 20250820
